FAERS Safety Report 6273430-3 (Version None)
Quarter: 2009Q4

REPORT INFORMATION
  Report Type: 
  Country: None (occurrence: None)
  Receive Date: 20090720
  Receipt Date: 20090715
  Transmission Date: 20100525
  Serious: Yes (Hospitalization)
  Sender: FDA-Public Use
  Company Number: FR-WYE-G04055709

PATIENT
  Sex: Male

DRUGS (3)
  1. ADVIL LIQUI-GELS [Suspect]
     Indication: PYREXIA
     Dosage: ^3 DOSES^
     Route: 048
     Dates: start: 20090615, end: 20090615
  2. PRIMALAN [Concomitant]
     Indication: PRURITUS
     Dosage: UNKNOWN
     Route: 048
     Dates: start: 20090616
  3. ACETAMINOPHEN [Suspect]
     Dosage: UNKNOWN
     Route: 048
     Dates: start: 20090616

REACTIONS (2)
  - PURPURA [None]
  - SUPERINFECTION [None]
